FAERS Safety Report 18627947 (Version 1)
Quarter: 2020Q4

REPORT INFORMATION
  Report Type: Spontaneous
  Country: IS (occurrence: IS)
  Receive Date: 20201217
  Receipt Date: 20201217
  Transmission Date: 20210114
  Serious: Yes (Death, Life-Threatening, Hospitalization)
  Sender: FDA-Public Use
  Company Number: IS-MYLANLABS-2020M1101793

PATIENT
  Age: 40 Year
  Sex: Male

DRUGS (1)
  1. CLOZAPINE. [Suspect]
     Active Substance: CLOZAPINE
     Indication: PRODUCT USED FOR UNKNOWN INDICATION
     Dosage: 150 MG X 1

REACTIONS (6)
  - Renal failure [Fatal]
  - Hepatic failure [Fatal]
  - Tachycardia [Fatal]
  - Cardiac arrest [Fatal]
  - Dyspnoea [Fatal]
  - Atrial fibrillation [Fatal]
